FAERS Safety Report 5441330-4 (Version None)
Quarter: 2007Q3

REPORT INFORMATION
  Report Type: 
  Country: None (occurrence: None)
  Receive Date: 20070903
  Receipt Date: 20070827
  Transmission Date: 20080115
  Serious: Yes (Other)
  Sender: FDA-Public Use
  Company Number: PHEH2007US11618

PATIENT
  Sex: Male

DRUGS (1)
  1. LOTREL [Suspect]

REACTIONS (1)
  - CEREBROVASCULAR ACCIDENT [None]
